FAERS Safety Report 16661774 (Version 1)
Quarter: 2019Q3

REPORT INFORMATION
  Report Type: Spontaneous
  Country: FR (occurrence: FR)
  Receive Date: 20190802
  Receipt Date: 20190802
  Transmission Date: 20191004
  Serious: Yes (Hospitalization, Other)
  Sender: FDA-Public Use
  Company Number: FR-PFIZER INC-2019323395

PATIENT
  Age: 44 Year
  Sex: Male
  Weight: 61 kg

DRUGS (8)
  1. LANSOPRAZOLE. [Concomitant]
     Active Substance: LANSOPRAZOLE
     Dosage: 30 MG, 1X/DAY
     Route: 048
  2. ALDACTONE [Suspect]
     Active Substance: SPIRONOLACTONE
     Indication: CARDIAC FAILURE
     Dosage: 0.5 DF, 1X/DAY
     Route: 048
     Dates: end: 20180210
  3. METHADONE AP HP [Concomitant]
     Active Substance: METHADONE HYDROCHLORIDE
     Dosage: 40 MG, 1X/DAY
     Route: 048
  4. VALIUM [Concomitant]
     Active Substance: DIAZEPAM
     Dosage: 3 DF, DAILY
     Route: 048
  5. COSIMPREL [Suspect]
     Active Substance: BISOPROLOL FUMARATE\PERINDOPRIL ARGININE
     Indication: CARDIAC FAILURE
     Dosage: 1 DF, 1X/DAY
     Route: 048
  6. ELIQUIS [Concomitant]
     Active Substance: APIXABAN
     Dosage: 1 DF, 1X/DAY
     Route: 048
  7. LASILIX [FUROSEMIDE] [Suspect]
     Active Substance: FUROSEMIDE
     Indication: CARDIAC FAILURE
     Dosage: 1 DF, 1X/DAY
     Route: 048
     Dates: end: 20180205
  8. METHADONE AP HP [Concomitant]
     Active Substance: METHADONE HYDROCHLORIDE
     Dosage: 10 MG, 1X/DAY
     Route: 048

REACTIONS (2)
  - Acute kidney injury [Recovered/Resolved]
  - Hypotension [Recovered/Resolved]

NARRATIVE: CASE EVENT DATE: 20180205
